FAERS Safety Report 9275445 (Version 1)
Quarter: 2012Q4

REPORT INFORMATION
  Report Type: Spontaneous
  Country: US (occurrence: None)
  Receive Date: 20121109
  Receipt Date: 20121109
  Transmission Date: 20130627
  Serious: Yes (Other)
  Sender: FDA-Public Use
  Company Number: 2012S1000278

PATIENT
  Age: 4 Year
  Sex: Female

DRUGS (1)
  1. CUBICIN [Suspect]
     Indication: CELLULITIS

REACTIONS (14)
  - Intestine transplant rejection [None]
  - Pneumonia [None]
  - Peritonitis bacterial [None]
  - Pseudomonas bronchitis [None]
  - Pseudomonal bacteraemia [None]
  - Renal failure [None]
  - Pneumonia pseudomonas aeruginosa [None]
  - Complications of transplanted kidney [None]
  - Renal and pancreas transplant [None]
  - Liver and small intestine transplant [None]
  - Surgical procedure repeated [None]
  - Pulmonary mass [None]
  - Lung consolidation [None]
  - Hilar lymphadenopathy [None]
